FAERS Safety Report 24284053 (Version 2)
Quarter: 2024Q4

REPORT INFORMATION
  Report Type: Spontaneous
  Country: US (occurrence: US)
  Receive Date: 20240905
  Receipt Date: 20241007
  Transmission Date: 20250114
  Serious: No
  Sender: ROCHE
  Company Number: US-ROCHE-10000070314

PATIENT
  Sex: Female
  Weight: 114.31 kg

DRUGS (3)
  1. XOLAIR [Suspect]
     Active Substance: OMALIZUMAB
     Indication: Food allergy
     Route: 058
     Dates: start: 202407
  2. XOLAIR [Suspect]
     Active Substance: OMALIZUMAB
  3. EPIPEN [Concomitant]
     Active Substance: EPINEPHRINE
     Dates: start: 20160527

REACTIONS (3)
  - Incorrect dose administered [Unknown]
  - Device defective [Unknown]
  - No adverse event [Unknown]

NARRATIVE: CASE EVENT DATE: 20240827
